FAERS Safety Report 21773807 (Version 1)
Quarter: 2022Q4

REPORT INFORMATION
  Report Type: Spontaneous
  Country: US (occurrence: None)
  Receive Date: 20221222
  Receipt Date: 20221222
  Transmission Date: 20230113
  Serious: No
  Sender: FDA-Public Use
  Company Number: None

PATIENT
  Age: 62 Year
  Sex: Male
  Weight: 90.9 kg

DRUGS (1)
  1. ENOXAPARIN [Suspect]
     Active Substance: ENOXAPARIN
     Indication: Venous thrombosis
     Dosage: FREQUENCY : DAILY;?
     Route: 058
     Dates: start: 20220908

REACTIONS (3)
  - Injection site pain [None]
  - Injection site nodule [None]
  - Rash [None]

NARRATIVE: CASE EVENT DATE: 20221207
